FAERS Safety Report 17786282 (Version 2)
Quarter: 2020Q3

REPORT INFORMATION
  Report Type: Report from Study
  Country: BD (occurrence: BD)
  Receive Date: 20200514
  Receipt Date: 20200519
  Transmission Date: 20201104
  Serious: Yes (Death)
  Sender: FDA-Public Use
  Company Number: NVSC2020BD130987

PATIENT
  Age: 70 Year
  Sex: Female
  Weight: 45 kg

DRUGS (2)
  1. ACLASTA [Suspect]
     Active Substance: ZOLEDRONIC ACID
     Indication: OSTEOPOROSIS
     Dosage: 1 DF, UNKNOWN (5MG/100ML, 1S, INTRAVENOUS, INFUSION)
     Route: 041
     Dates: start: 20180313
  2. INSULIN [Concomitant]
     Active Substance: INSULIN NOS
     Indication: DIABETES MELLITUS
     Dosage: UNK
     Route: 065

REACTIONS (2)
  - Concomitant disease aggravated [Fatal]
  - Tuberculosis [Fatal]

NARRATIVE: CASE EVENT DATE: 20200216
